FAERS Safety Report 9422100 (Version 1)
Quarter: 2013Q3

REPORT INFORMATION
  Report Type: Not Available
  Country: AU (occurrence: AU)
  Receive Date: 20130726
  Receipt Date: 20130726
  Transmission Date: 20140515
  Serious: Yes (Hospitalization)
  Sender: FDA-Public Use
  Company Number: AU-PURDUE-USA-2013-0104883

PATIENT
  Age: 89 Year
  Sex: Female

DRUGS (9)
  1. NORSPAN (NDA 21-306) [Suspect]
     Indication: PAIN
     Dosage: 5 MCG/HR, WEEKLY
     Route: 062
     Dates: start: 20130410, end: 20130415
  2. ATORVASTATIN [Suspect]
     Indication: METABOLIC DISORDER
     Dosage: 20 MG, UNK
     Route: 048
     Dates: end: 20130415
  3. METRONIDAZOLE [Suspect]
     Indication: PRODUCT USED FOR UNKNOWN INDICATION
     Dosage: UNK
     Dates: start: 20130408, end: 20130411
  4. PARACETAMOL [Suspect]
     Indication: PAIN
     Dosage: 3000 MG, UNK
     Route: 048
     Dates: end: 20130415
  5. VANCOMYCIN HYDROCHLORIDE [Suspect]
     Indication: PRODUCT USED FOR UNKNOWN INDICATION
     Dosage: 500 MG, UNK
     Route: 048
     Dates: start: 20130411, end: 20130415
  6. CHOLECALCIFEROL [Concomitant]
     Indication: PRODUCT USED FOR UNKNOWN INDICATION
     Dosage: UNK
     Dates: start: 20130405
  7. PANTOPRAZOLE [Concomitant]
     Indication: PRODUCT USED FOR UNKNOWN INDICATION
     Dosage: UNKNOWN
  8. PHOSPHATE-SANDOZ [Concomitant]
     Indication: PRODUCT USED FOR UNKNOWN INDICATION
     Dosage: UNK
     Dates: start: 20130409
  9. POTASSIUM [Concomitant]
     Indication: PRODUCT USED FOR UNKNOWN INDICATION
     Dosage: UNK
     Dates: start: 20130409

REACTIONS (1)
  - Hepatic function abnormal [Not Recovered/Not Resolved]
